FAERS Safety Report 6240421-8 (Version None)
Quarter: 2009Q2

REPORT INFORMATION
  Report Type: 
  Country: None (occurrence: None)
  Receive Date: 20090618
  Receipt Date: 20090618
  Transmission Date: 20091009
  Serious: No
  Sender: FDA-Public Use
  Company Number: None

PATIENT
  Age: 63 Year
  Sex: Female
  Weight: 60.782 kg

DRUGS (1)
  1. LAMISIL [Suspect]
     Indication: ONYCHOMYCOSIS
     Dosage: ONCE DAY
     Dates: start: 20090520, end: 20090605

REACTIONS (7)
  - AGEUSIA [None]
  - COUGH [None]
  - DIARRHOEA [None]
  - FAECES DISCOLOURED [None]
  - HYPOPHAGIA [None]
  - NAUSEA [None]
  - WEIGHT DECREASED [None]
